FAERS Safety Report 7597977-2 (Version None)
Quarter: 2011Q3

REPORT INFORMATION
  Report Type: 
  Country: None (occurrence: None)
  Receive Date: 20110708
  Receipt Date: 20110705
  Transmission Date: 20111222
  Serious: Yes (Death, Other)
  Sender: FDA-Public Use
  Company Number: PHHY2011KR60186

PATIENT

DRUGS (2)
  1. RIBAVIRIN [Suspect]
     Indication: HEPATITIS C
  2. PEGINTERFERON ALFA-2B [Concomitant]

REACTIONS (5)
  - RENAL FAILURE [None]
  - DECREASED APPETITE [None]
  - NUTRITIONAL CONDITION ABNORMAL [None]
  - DEATH [None]
  - DEPRESSION [None]
